FAERS Safety Report 18912239 (Version 1)
Quarter: 2021Q1

REPORT INFORMATION
  Report Type: Spontaneous
  Country: CA (occurrence: CA)
  Receive Date: 20210219
  Receipt Date: 20210219
  Transmission Date: 20210420
  Serious: Yes (Hospitalization)
  Sender: FDA-Public Use
  Company Number: CA-JNJFOC-20210231847

PATIENT
  Age: 92 Year
  Sex: Female

DRUGS (10)
  1. BISOPROLOL [Concomitant]
     Active Substance: BISOPROLOL
     Indication: ATRIAL FIBRILLATION
     Dosage: UNK
  2. FUROSEMIDE. [Concomitant]
     Active Substance: FUROSEMIDE
     Indication: CARDIAC FAILURE
     Dosage: UNK
  3. BISOPROLOL [Concomitant]
     Active Substance: BISOPROLOL
     Indication: TACHYCARDIA
  4. SPIRONOLACTONE. [Concomitant]
     Active Substance: SPIRONOLACTONE
     Indication: CARDIAC FAILURE
     Dosage: UNK
  5. OXAZEPAM. [Concomitant]
     Active Substance: OXAZEPAM
     Indication: INSOMNIA
     Dosage: UNK
  6. RIVAROXABAN [Suspect]
     Active Substance: RIVAROXABAN
     Indication: ATRIAL FIBRILLATION
     Dosage: 15 MG, QD
     Route: 048
     Dates: start: 20180827, end: 20210111
  7. LEVOTHYROXINE. [Concomitant]
     Active Substance: LEVOTHYROXINE
     Indication: HYPOTHYROIDISM
     Dosage: UNK
  8. ATORVASTATIN [Concomitant]
     Active Substance: ATORVASTATIN
     Indication: DYSLIPIDAEMIA
     Dosage: UNK
  9. FERROUS SULFATE. [Concomitant]
     Active Substance: FERROUS SULFATE
     Indication: ANAEMIA
     Dosage: UNK
  10. BISOPROLOL [Concomitant]
     Active Substance: BISOPROLOL
     Indication: HYPERTENSION

REACTIONS (3)
  - Anaemia [Recovering/Resolving]
  - Syncope [Recovering/Resolving]
  - Sinus node dysfunction [Recovering/Resolving]

NARRATIVE: CASE EVENT DATE: 20210107
